FAERS Safety Report 24681664 (Version 1)
Quarter: 2024Q4

REPORT INFORMATION
  Report Type: Spontaneous
  Country: US (occurrence: US)
  Receive Date: 20241130
  Receipt Date: 20241130
  Transmission Date: 20250115
  Serious: Yes (Other)
  Sender: ABBVIE
  Company Number: US-ABBVIE-6022987

PATIENT
  Age: 43 Year
  Sex: Female

DRUGS (1)
  1. RINVOQ [Suspect]
     Active Substance: UPADACITINIB
     Indication: Product used for unknown indication
     Dosage: 30 MIIGRAM
     Route: 048
     Dates: start: 202408

REACTIONS (1)
  - Product residue present [Not Recovered/Not Resolved]

NARRATIVE: CASE EVENT DATE: 20240101
